FAERS Safety Report 17371422 (Version 1)
Quarter: 2020Q1

REPORT INFORMATION
  Report Type: Spontaneous
  Country: JP (occurrence: JP)
  Receive Date: 20200205
  Receipt Date: 20200205
  Transmission Date: 20200409
  Serious: Yes (Other)
  Sender: FDA-Public Use
  Company Number: JP-BRISTOL-MYERS SQUIBB COMPANY-BMS-2018-008967

PATIENT
  Age: 73 Year
  Sex: Male

DRUGS (1)
  1. OPDIVO [Suspect]
     Active Substance: NIVOLUMAB
     Indication: RENAL CELL CARCINOMA
     Dosage: 180 MILLIGRAM/KILOGRAM, Q2WK
     Route: 041
     Dates: start: 20170725

REACTIONS (1)
  - Nephropathy toxic [Recovered/Resolved]

NARRATIVE: CASE EVENT DATE: 20180130
